FAERS Safety Report 9123354 (Version 1)
Quarter: 2013Q1

REPORT INFORMATION
  Report Type: Spontaneous
  Country: US (occurrence: US)
  Receive Date: 20130227
  Receipt Date: 20130227
  Transmission Date: 20140127
  Serious: Yes (Other)
  Sender: FDA-Public Use
  Company Number: US-PFIZER INC-2013067000

PATIENT
  Sex: Female

DRUGS (1)
  1. CYTOTEC [Suspect]
     Dosage: UNK
     Route: 067

REACTIONS (2)
  - Off label use [Unknown]
  - Foetal death [Unknown]
